FAERS Safety Report 25701520 (Version 1)
Quarter: 2025Q3

REPORT INFORMATION
  Report Type: Spontaneous
  Country: US (occurrence: None)
  Receive Date: 20250818
  Receipt Date: 20250818
  Transmission Date: 20251021
  Serious: Yes (Hospitalization)
  Sender: FDA-CTU
  Company Number: None

PATIENT
  Age: 50 Year
  Sex: Female
  Weight: 78.47 kg

DRUGS (10)
  1. INGREZZA [Suspect]
     Active Substance: VALBENAZINE DITOSYLATE
     Dosage: FREQUENCY : DAILY;?
     Dates: start: 20250203
  2. HYDROMORPHONE [Concomitant]
     Active Substance: HYDROMORPHONE
  3. d-ampheamine er [Concomitant]
  4. TIZANIDINE [Concomitant]
     Active Substance: TIZANIDINE
  5. TRAZODONE [Concomitant]
     Active Substance: TRAZODONE HYDROCHLORIDE
  6. SERTRALINE [Concomitant]
     Active Substance: SERTRALINE HYDROCHLORIDE
  7. CLONIDINE [Concomitant]
     Active Substance: CLONIDINE
  8. BUSPIRONE [Concomitant]
     Active Substance: BUSPIRONE HYDROCHLORIDE
  9. LAMOTRIGINE [Concomitant]
     Active Substance: LAMOTRIGINE
  10. EMGALITY [Concomitant]
     Active Substance: GALCANEZUMAB-GNLM

REACTIONS (1)
  - Myocarditis infectious [None]

NARRATIVE: CASE EVENT DATE: 20250815
